FAERS Safety Report 21611579 (Version 1)
Quarter: 2022Q4

REPORT INFORMATION
  Report Type: Report from Study
  Country: US (occurrence: US)
  Receive Date: 20221117
  Receipt Date: 20221117
  Transmission Date: 20230113
  Serious: Yes (Hospitalization, Other)
  Sender: FDA-Public Use
  Company Number: US-ACADIA PHARMACEUTICALS INC.-ACA-2022-PIM-003691

PATIENT
  Age: 67 Year
  Sex: Male

DRUGS (14)
  1. NUPLAZID [Suspect]
     Active Substance: PIMAVANSERIN TARTRATE
     Indication: Parkinson^s disease psychosis
     Dosage: 34 MILLIGRAM, QD
     Route: 048
     Dates: start: 20220526
  2. AZELASTINE [Concomitant]
     Active Substance: AZELASTINE
  3. CARBIDOPA\LEVODOPA [Concomitant]
     Active Substance: CARBIDOPA\LEVODOPA
     Dosage: ER
  4. CHOLECALCIFEROL [Concomitant]
     Active Substance: CHOLECALCIFEROL
  5. CLONAZEPAM [Concomitant]
     Active Substance: CLONAZEPAM
  6. COPPER GLUCONATE [Concomitant]
     Active Substance: COPPER GLUCONATE
  7. CYANOCOBALAMIN [Concomitant]
     Active Substance: CYANOCOBALAMIN
  8. DONEPEZIL [Concomitant]
     Active Substance: DONEPEZIL
  9. KETOCONAZOLE [Concomitant]
     Active Substance: KETOCONAZOLE
  10. LEVOTHYROXINE [Concomitant]
     Active Substance: LEVOTHYROXINE
  11. MELATONIN [Concomitant]
     Active Substance: MELATONIN
  12. NAPROXEN [Concomitant]
     Active Substance: NAPROXEN
  13. PAROXETINE [Concomitant]
     Active Substance: PAROXETINE
  14. PYRIDOXINE [Concomitant]
     Active Substance: PYRIDOXINE

REACTIONS (3)
  - Pneumothorax [Recovered/Resolved]
  - Rib fracture [Recovered/Resolved]
  - Fall [Recovered/Resolved]

NARRATIVE: CASE EVENT DATE: 20220916
